FAERS Safety Report 5003437-5 (Version None)
Quarter: 2006Q1

REPORT INFORMATION
  Report Type: 
  Country: None (occurrence: None)
  Receive Date: 20060320
  Receipt Date: 20050321
  Transmission Date: 20060701
  Serious: Yes (Other)
  Sender: FDA-Public Use
  Company Number: HQWYE846425JAN05

PATIENT
  Age: 38 Year
  Sex: Female
  Weight: 96.25 kg

DRUGS (2)
  1. LO/OVRAL [Suspect]
     Indication: CONTRACEPTION
     Dosage: 1 TABLET 1X PER 1 DAY, ORAL
     Route: 048
     Dates: start: 20040808
  2. LO/OVRAL [Suspect]
     Indication: MENSTRUATION IRREGULAR
     Dosage: 1 TABLET 1X PER 1 DAY, ORAL
     Route: 048
     Dates: start: 20040808

REACTIONS (1)
  - VAGINAL HAEMORRHAGE [None]
